FAERS Safety Report 12317415 (Version 3)
Quarter: 2016Q2

REPORT INFORMATION
  Report Type: Spontaneous
  Country: US (occurrence: US)
  Receive Date: 20160429
  Receipt Date: 20160616
  Transmission Date: 20160815
  Serious: No
  Sender: FDA-Public Use
  Company Number: US-PFIZER INC-2016202505

PATIENT
  Age: 55 Year
  Sex: Female
  Weight: 64 kg

DRUGS (31)
  1. RELPAX [Suspect]
     Active Substance: ELETRIPTAN HYDROBROMIDE
     Indication: HEADACHE
     Dosage: 40 MG, 1X/DAY (AS NEEDED)
     Dates: start: 20160402, end: 20160403
  2. ADDERALL [Suspect]
     Active Substance: AMPHETAMINE ASPARTATE\AMPHETAMINE SULFATE\DEXTROAMPHETAMINE SACCHARATE\DEXTROAMPHETAMINE SULFATE
     Indication: ATTENTION DEFICIT/HYPERACTIVITY DISORDER
     Dosage: 60 MG, 2X/DAY
     Dates: start: 201002
  3. XANAX [Concomitant]
     Active Substance: ALPRAZOLAM
     Dosage: 1 MG, 2X/DAY
     Dates: start: 201002
  4. PHOSLO [Concomitant]
     Active Substance: CALCIUM ACETATE
     Dosage: 667 MG, 2X/DAY
     Dates: start: 200905
  5. SEROQUEL [Concomitant]
     Active Substance: QUETIAPINE FUMARATE
     Dosage: 100 MG, 1X/DAY
     Dates: start: 200802
  6. SYNTHROID [Concomitant]
     Active Substance: LEVOTHYROXINE SODIUM
     Dosage: 75 UG, 1X/DAY
     Dates: start: 201306
  7. PROLENSA [Concomitant]
     Active Substance: BROMFENAC SODIUM
     Dosage: UNK, 2X/DAY
     Route: 031
     Dates: start: 201602
  8. LEVOBUNOLOL HCL [Concomitant]
     Dosage: UNK, 2X/DAY
     Dates: start: 201602
  9. SINGULAIR [Concomitant]
     Active Substance: MONTELUKAST SODIUM
     Dosage: 10 MG, 1X/DAY
     Dates: start: 200802
  10. VITAMIN D [Concomitant]
     Active Substance: CHOLECALCIFEROL
     Dosage: UNK UNK, 1X/DAY (1000 IU/25 MCG )
     Dates: start: 200905
  11. NOVOLOG [Concomitant]
     Active Substance: INSULIN ASPART
     Dosage: UNK, DAILY
     Dates: start: 197107
  12. VITAMIN B12 [Concomitant]
     Active Substance: CYANOCOBALAMIN
     Dosage: 500 UG, 1X/DAY
     Route: 060
     Dates: start: 200905
  13. ASPIRIN. [Concomitant]
     Active Substance: ASPIRIN
     Dosage: 81 MG, DAILY
  14. ECOTRIN [Concomitant]
     Active Substance: ASPIRIN
     Dosage: UNK, 1X/DAY
     Dates: start: 201602
  15. INTEGRA PLUS [Concomitant]
     Active Substance: ASCORBIC ACID\BIOTIN\CALCIUM PANTOTHENATE\FERROUS ASPARTO GLYCINATE\FERROUS FUMARATE\FOLIC ACID\NIACIN\PYRIDOXINE HYDROCHLORIDE\RIBOFLAVIN\THIAMINE MONONITRATE
     Indication: VITAMIN SUPPLEMENTATION
     Dosage: UNK (125 MG/1 MG), 1X/DAY
     Dates: start: 200905
  16. RETAINE MGD [Concomitant]
     Active Substance: LIGHT MINERAL OIL\MINERAL OIL
     Dosage: UNK  (0.57 %  0.1FL OZ ), 2X/DAY
     Dates: start: 201604
  17. OMEGA 3 FISH OIL [Concomitant]
     Active Substance: FISH OIL\OMEGA-3 FATTY ACIDS
     Dosage: UNK, 2X/DAY
     Dates: start: 201412
  18. PRAVASTATIN [Concomitant]
     Active Substance: PRAVASTATIN\PRAVASTATIN SODIUM
     Dosage: 20 MG, 1X/DAY
     Dates: start: 200905
  19. ALPHAGAN P [Concomitant]
     Active Substance: BRIMONIDINE TARTRATE
     Dosage: UNK, 2X/DAY
     Route: 031
     Dates: start: 201412
  20. ASPIRIN. [Concomitant]
     Active Substance: ASPIRIN
     Dosage: 81 MG, 1X/DAY
     Dates: start: 201602
  21. GLUCOSAMINE + CHONDROITIN WITH MSM [Concomitant]
     Dosage: UNK (GLUCOSAMINE -1500 MG,CHONDROITIN-1200 MG,MSM-300 MG)
     Dates: start: 201412
  22. PROBIOTIC [Concomitant]
     Active Substance: PROBIOTICS NOS
     Dosage: UNK, 1X/DAY
     Dates: start: 200905
  23. ZOFRAN [Concomitant]
     Active Substance: ONDANSETRON HYDROCHLORIDE
     Dosage: 4 MG, AS NEEDED
     Dates: start: 200802
  24. METANX [Concomitant]
     Active Substance: LEVOMEFOLATE CALCIUM\METHYLCOBALAMIN\PYRIDOXAL PHOSPHATE ANHYDROUS
     Dosage: UNK (CALCIUM MEFOLINATE- 3 MG, PYRIDOXINE HYDROCHLORIDE-35 MG, VITAMIN B12-2MG), 2X/DAY
     Dates: start: 201503
  25. LISINOPRIL. [Concomitant]
     Active Substance: LISINOPRIL
     Dosage: 10 MG, 1X/DAY
     Dates: start: 200905
  26. PREDNISONE. [Concomitant]
     Active Substance: PREDNISONE
     Dosage: UNK, 2X/DAY
     Route: 031
     Dates: start: 201412
  27. PREDNISOLONE. [Concomitant]
     Active Substance: PREDNISOLONE
     Dosage: UNK, 2X/DAY
     Dates: start: 201412
  28. ZOLOFT [Concomitant]
     Active Substance: SERTRALINE HYDROCHLORIDE
     Dosage: 50 MG, 1X/DAY
     Dates: start: 201601
  29. RELPAX [Suspect]
     Active Substance: ELETRIPTAN HYDROBROMIDE
     Indication: MIGRAINE
     Dosage: 40 MG, 1X/DAY
     Dates: start: 20160402, end: 20160404
  30. VICODIN [Concomitant]
     Active Substance: ACETAMINOPHEN\HYDROCODONE BITARTRATE
     Dosage: UNK (HYDROCODONE BITARTRATE-7.5 MG AND PARACETAMOL-300 MG), 2X/DAY
     Dates: start: 201212
  31. CALCIUM [Concomitant]
     Active Substance: CALCIUM
     Dosage: 667 MG, 2X/DAY
     Dates: start: 200905

REACTIONS (12)
  - Flushing [Recovered/Resolved]
  - Asthenia [Recovered/Resolved]
  - Discomfort [Recovered/Resolved]
  - Dizziness [Recovered/Resolved]
  - Heart rate increased [Recovered/Resolved]
  - Nausea [Recovered/Resolved]
  - Abdominal pain upper [Recovered/Resolved]
  - Hypersensitivity [Recovered/Resolved]
  - Diarrhoea [Recovered/Resolved]
  - Dyspepsia [Recovered/Resolved]
  - Vomiting [Recovered/Resolved]
  - Abdominal pain [Recovered/Resolved]

NARRATIVE: CASE EVENT DATE: 20160402
